FAERS Safety Report 6978231-6 (Version None)
Quarter: 2010Q3

REPORT INFORMATION
  Report Type: 
  Country: None (occurrence: None)
  Receive Date: 20100913
  Receipt Date: 20100831
  Transmission Date: 20110219
  Serious: Yes (Hospitalization)
  Sender: FDA-Public Use
  Company Number: DK-ELI_LILLY_AND_COMPANY-DK201008008839

PATIENT
  Sex: Female
  Weight: 93 kg

DRUGS (1)
  1. CYMBALTA [Suspect]
     Indication: DEPRESSION
     Dosage: 30 MG, DAILY (1/D)
     Route: 048
     Dates: start: 20100603, end: 20100618

REACTIONS (9)
  - ARTHRALGIA [None]
  - BLOOD CREATINE PHOSPHOKINASE INCREASED [None]
  - COUGH [None]
  - DISCOMFORT [None]
  - ECCHYMOSIS [None]
  - MYALGIA [None]
  - OROPHARYNGEAL PAIN [None]
  - PYREXIA [None]
  - SKIN ULCER [None]
